FAERS Safety Report 8262955-7 (Version None)
Quarter: 2012Q2

REPORT INFORMATION
  Report Type: 
  Country: None (occurrence: None)
  Receive Date: 20120405
  Receipt Date: 20120402
  Transmission Date: 20120825
  Serious: Yes (Life-Threatening, Hospitalization)
  Sender: FDA-Public Use
  Company Number: US-BRISTOL-MYERS SQUIBB COMPANY-16373318

PATIENT
  Age: 57 Year
  Sex: Female
  Weight: 66 kg

DRUGS (11)
  1. INSULIN [Concomitant]
  2. SERTRALINE HYDROCHLORIDE [Concomitant]
  3. ORENCIA [Suspect]
     Indication: RHEUMATOID ARTHRITIS
     Route: 042
  4. VITAMIN B-12 [Concomitant]
     Route: 060
  5. VITAMIN D [Concomitant]
  6. LEVOTHYROXINE SODIUM [Concomitant]
  7. MONTELUKAST [Concomitant]
  8. CARVEDILOL [Concomitant]
  9. IBUPROFEN [Concomitant]
  10. ASPIRIN [Concomitant]
     Dosage: 1DF=1 (NO UNITS)
  11. GABAPENTIN [Concomitant]

REACTIONS (1)
  - GUILLAIN-BARRE SYNDROME [None]
